FAERS Safety Report 9181521 (Version 1)
Quarter: 2013Q1

REPORT INFORMATION
  Report Type: Spontaneous
  Country: CZ (occurrence: CZ)
  Receive Date: 20130322
  Receipt Date: 20130322
  Transmission Date: 20140127
  Serious: Yes (Other)
  Sender: FDA-Public Use
  Company Number: CZ-BRISTOL-MYERS SQUIBB COMPANY-17468919

PATIENT
  Age: 62 Year
  Sex: Female

DRUGS (1)
  1. ERBITUX [Suspect]
     Indication: COLORECTAL CANCER

REACTIONS (1)
  - Colitis [Recovered/Resolved]
